FAERS Safety Report 18238870 (Version 1)
Quarter: 2020Q3

REPORT INFORMATION
  Report Type: Spontaneous
  Country: CN (occurrence: CN)
  Receive Date: 20200907
  Receipt Date: 20200907
  Transmission Date: 20201103
  Serious: Yes (Life-Threatening)
  Sender: FDA-Public Use
  Company Number: CN-ASTRAZENECA-2020SF12956

PATIENT
  Age: 67 Year
  Sex: Male
  Weight: 45 kg

DRUGS (4)
  1. BUDESONIDE. [Suspect]
     Active Substance: BUDESONIDE
     Indication: HYPOTONIA
     Route: 055
     Dates: start: 20200826, end: 20200826
  2. BUDESONIDE. [Suspect]
     Active Substance: BUDESONIDE
     Indication: ASTHMA PROPHYLAXIS
     Route: 055
     Dates: start: 20200826, end: 20200826
  3. TERBUTALINE SULPHATE [Suspect]
     Active Substance: TERBUTALINE SULFATE
     Indication: ASTHMA PROPHYLAXIS
     Route: 055
     Dates: start: 20200826, end: 20200826
  4. TERBUTALINE SULPHATE [Suspect]
     Active Substance: TERBUTALINE SULFATE
     Indication: HYPOTONIA
     Route: 055
     Dates: start: 20200826, end: 20200826

REACTIONS (9)
  - Loss of consciousness [Recovering/Resolving]
  - Wheezing [Unknown]
  - Heart rate increased [Recovering/Resolving]
  - Dyspnoea [Recovering/Resolving]
  - Dysphoria [Recovering/Resolving]
  - Blood pressure increased [Recovering/Resolving]
  - Cyanosis [Recovering/Resolving]
  - Oxygen saturation decreased [Recovering/Resolving]
  - Heart sounds abnormal [Unknown]

NARRATIVE: CASE EVENT DATE: 20200826
